FAERS Safety Report 9596904 (Version 2)
Quarter: 2013Q4

REPORT INFORMATION
  Report Type: Spontaneous
  Country: JP (occurrence: JP)
  Receive Date: 20131004
  Receipt Date: 20131031
  Transmission Date: 20140711
  Serious: Yes (Death, Hospitalization, Other)
  Sender: FDA-Public Use
  Company Number: JP-ASTRAZENECA-2013SE73500

PATIENT
  Age: 58 Year
  Sex: Male

DRUGS (3)
  1. SEROQUEL [Suspect]
     Indication: RESTLESSNESS
     Route: 048
  2. SEROQUEL [Suspect]
     Indication: RESTLESSNESS
     Dosage: 25 MG, THREE TIMES A DAY, ON AN AS NEEDED BASIS
     Route: 048
     Dates: end: 20130926
  3. SEROQUEL [Suspect]
     Indication: RESTLESSNESS
     Dosage: AS NEEDED
     Route: 054
     Dates: start: 20130926, end: 20130930

REACTIONS (5)
  - Malignant neoplasm progression [Fatal]
  - Aphagia [Not Recovered/Not Resolved]
  - Asthenia [Unknown]
  - Intentional drug misuse [Unknown]
  - Off label use [Unknown]
